FAERS Safety Report 7444234-0 (Version None)
Quarter: 2011Q2

REPORT INFORMATION
  Report Type: 
  Country: None (occurrence: None)
  Receive Date: 20110429
  Receipt Date: 20110307
  Transmission Date: 20111010
  Serious: Yes (Hospitalization, Disabling)
  Sender: FDA-Public Use
  Company Number: US-BAYER-2011-004045

PATIENT
  Age: 34 Year
  Sex: Female
  Weight: 99.773 kg

DRUGS (8)
  1. DROSPIRENONE AND ETHINYL ESTRADIOL [Suspect]
     Indication: PRODUCT USED FOR UNKNOWN INDICATION
  2. DICYCLOMINE [Concomitant]
     Dosage: 10 MG, UNK
     Dates: start: 20060901
  3. AZITHROMYCIN [Concomitant]
     Dosage: 500 MG, UNK
     Dates: start: 20060801
  4. YASMIN [Suspect]
     Indication: PRODUCT USED FOR UNKNOWN INDICATION
  5. OMEPRAZOLE [Concomitant]
     Dosage: 10 MG, UNK
     Dates: start: 20060901
  6. NSAID'S [Concomitant]
  7. YAZ [Suspect]
     Indication: PRODUCT USED FOR UNKNOWN INDICATION
  8. FUROSEMIDE [Concomitant]
     Dosage: 20 MG, UNK
     Dates: start: 20060801

REACTIONS (4)
  - EMOTIONAL DISTRESS [None]
  - CHOLELITHIASIS [None]
  - GALLBLADDER DISORDER [None]
  - CHOLECYSTITIS [None]
